FAERS Safety Report 19139672 (Version 1)
Quarter: 2021Q2

REPORT INFORMATION
  Report Type: Spontaneous
  Country: CA (occurrence: CA)
  Receive Date: 20210415
  Receipt Date: 20210415
  Transmission Date: 20210717
  Serious: Yes (Death, Hospitalization, Other)
  Sender: FDA-Public Use
  Company Number: NVSC2021CA083766

PATIENT
  Age: 74 Year
  Sex: Female

DRUGS (10)
  1. SANDOSTATIN LAR DEPOT [Suspect]
     Active Substance: OCTREOTIDE ACETATE
     Indication: PANCREATIC NEUROENDOCRINE TUMOUR METASTATIC
     Dosage: 1 EVERY 1 MONTHS (SOLUTION FOR INJECTION)
     Route: 030
  2. SANDOSTATIN LAR DEPOT [Suspect]
     Active Substance: OCTREOTIDE ACETATE
     Dosage: 1 EVERY 1 MONTHS (SOLUTION FOR INJECTION)
     Route: 030
  3. CAPECITABINE. [Concomitant]
     Active Substance: CAPECITABINE
     Dosage: 2 EVERY 1 DAY (TABLET)
     Route: 065
  4. TEMOZOLOMIDE. [Concomitant]
     Active Substance: TEMOZOLOMIDE
     Indication: PRODUCT USED FOR UNKNOWN INDICATION
     Dosage: 1 EVERY 1 DAYS
     Route: 048
  5. CAPECITABINE. [Concomitant]
     Active Substance: CAPECITABINE
     Indication: PRODUCT USED FOR UNKNOWN INDICATION
     Dosage: 2 EVERY 1 DAY (TABLET)
     Route: 048
  6. SANDOSTATIN LAR DEPOT [Suspect]
     Active Substance: OCTREOTIDE ACETATE
     Dosage: 1 EVERY 1 MONTHS
     Route: 030
  7. SUTENT [Suspect]
     Active Substance: SUNITINIB MALATE
     Indication: PRODUCT USED FOR UNKNOWN INDICATION
     Dosage: 12.5 MG
     Route: 065
  8. CAPECITABINE. [Concomitant]
     Active Substance: CAPECITABINE
     Dosage: 2 EVERY 1 DAY
     Route: 065
  9. ONDANSETRON HYDROCHLORIDE. [Concomitant]
     Active Substance: ONDANSETRON HYDROCHLORIDE
     Indication: PRODUCT USED FOR UNKNOWN INDICATION
     Dosage: 1 EVERY 1 DAYS
     Route: 048
  10. VITAMIN B12 [Concomitant]
     Active Substance: CYANOCOBALAMIN
     Indication: PRODUCT USED FOR UNKNOWN INDICATION
     Dosage: 1 EVERY 1 DAYS
     Route: 048

REACTIONS (36)
  - Urinary tract infection [Fatal]
  - Musculoskeletal pain [Fatal]
  - Movement disorder [Fatal]
  - General physical health deterioration [Fatal]
  - Balance disorder [Fatal]
  - Back pain [Fatal]
  - Anaemia [Fatal]
  - Sensory loss [Fatal]
  - Hypoaesthesia [Fatal]
  - Cerebral haemorrhage [Fatal]
  - Body temperature decreased [Fatal]
  - Arthralgia [Fatal]
  - Rhinorrhoea [Fatal]
  - Pallor [Fatal]
  - Nausea [Fatal]
  - Nasopharyngitis [Fatal]
  - Hypoglycaemia [Fatal]
  - Herpes zoster [Fatal]
  - Gait inability [Fatal]
  - Malaise [Fatal]
  - Fatigue [Fatal]
  - Dizziness [Fatal]
  - Disorientation [Fatal]
  - Stress [Fatal]
  - Seizure [Fatal]
  - Pain [Fatal]
  - Needle issue [Fatal]
  - Injection site pain [Fatal]
  - Hypotension [Fatal]
  - Gait disturbance [Fatal]
  - Pain in extremity [Fatal]
  - Loss of consciousness [Fatal]
  - Hypertension [Fatal]
  - Fall [Fatal]
  - Diabetes mellitus [Fatal]
  - Blood pressure diastolic decreased [Fatal]
